FAERS Safety Report 8814904 (Version 2)
Quarter: 2015Q2

REPORT INFORMATION
  Report Type: Report from Study
  Country: US (occurrence: US)
  Receive Date: 20120928
  Receipt Date: 20150401
  Transmission Date: 20150821
  Serious: Yes (Death, Other)
  Sender: FDA-Public Use
  Company Number: US-ROCHE-1126425

PATIENT
  Age: 60 Year
  Sex: Female

DRUGS (26)
  1. ABRAXANE [Concomitant]
     Active Substance: PACLITAXEL
     Route: 065
  2. QUADRAMET [Concomitant]
     Active Substance: SAMARIUM SM-153 LEXIDRONAM PENTASODIUM
  3. BONIVA [Concomitant]
     Active Substance: IBANDRONATE SODIUM
     Indication: OSTEOARTHRITIS
  4. ALOXI [Concomitant]
     Active Substance: PALONOSETRON HYDROCHLORIDE
     Route: 065
  5. DECADRON [Concomitant]
     Active Substance: DEXAMETHASONE
     Route: 065
  6. CATHFLO ACTIVASE [Concomitant]
     Active Substance: ALTEPLASE
     Route: 042
  7. OXYCONTIN [Concomitant]
     Active Substance: OXYCODONE HYDROCHLORIDE
     Route: 065
  8. ZOMETA [Concomitant]
     Active Substance: ZOLEDRONIC ACID
     Route: 065
  9. FLU SHOT [Concomitant]
     Active Substance: INFLUENZA VIRUS VACCINE
     Route: 065
  10. ZOFRAN [Concomitant]
     Active Substance: ONDANSETRON HYDROCHLORIDE
     Route: 065
  11. ZANTAC [Concomitant]
     Active Substance: RANITIDINE HYDROCHLORIDE
  12. HEPARIN [Concomitant]
     Active Substance: HEPARIN SODIUM
  13. AVASTIN [Suspect]
     Active Substance: BEVACIZUMAB
     Indication: BREAST CANCER FEMALE
     Route: 042
     Dates: start: 20080801
  14. XELODA [Suspect]
     Active Substance: CAPECITABINE
     Indication: BREAST CANCER FEMALE
     Route: 065
     Dates: end: 20080421
  15. LORTAB (UNITED STATES) [Concomitant]
  16. BONIVA [Concomitant]
     Active Substance: IBANDRONATE SODIUM
     Indication: OSTEOPOROSIS
     Route: 065
  17. ATIVAN [Concomitant]
     Active Substance: LORAZEPAM
     Route: 065
  18. CARBOPLATIN. [Concomitant]
     Active Substance: CARBOPLATIN
     Route: 065
  19. BENADRYL [Concomitant]
     Active Substance: DIPHENHYDRAMINE HYDROCHLORIDE
     Route: 065
  20. NEUPOGEN [Concomitant]
     Active Substance: FILGRASTIM
     Route: 065
  21. IBUPROFEN. [Concomitant]
     Active Substance: IBUPROFEN
     Route: 065
  22. XELODA [Suspect]
     Active Substance: CAPECITABINE
     Route: 065
  23. XELODA [Suspect]
     Active Substance: CAPECITABINE
     Route: 065
  24. NAVELBINE [Concomitant]
     Active Substance: VINORELBINE TARTRATE
     Route: 065
     Dates: start: 20080627
  25. OXYCODONE [Concomitant]
     Active Substance: OXYCODONE
  26. MOTRIN [Concomitant]
     Active Substance: IBUPROFEN
     Route: 048

REACTIONS (17)
  - Death [Fatal]
  - Disease progression [Unknown]
  - Tooth disorder [Unknown]
  - Nausea [Unknown]
  - Osteoporosis [Unknown]
  - Photosensitivity reaction [Unknown]
  - Bone pain [Unknown]
  - Metastases to spine [Unknown]
  - Cough [Unknown]
  - Dyspnoea [Unknown]
  - Neutropenia [Unknown]
  - No therapeutic response [Unknown]
  - Osteoarthritis [Unknown]
  - Palmar-plantar erythrodysaesthesia syndrome [Unknown]
  - Vomiting [Unknown]
  - Constipation [Unknown]
  - Musculoskeletal chest pain [Unknown]

NARRATIVE: CASE EVENT DATE: 20090701
